APPROVED DRUG PRODUCT: FLAVOXATE HYDROCHLORIDE
Active Ingredient: FLAVOXATE HYDROCHLORIDE
Strength: 100MG
Dosage Form/Route: TABLET;ORAL
Application: A076835 | Product #001 | TE Code: AB
Applicant: EPIC PHARMA LLC
Approved: Nov 30, 2005 | RLD: No | RS: No | Type: RX